FAERS Safety Report 8846776 (Version 1)
Quarter: 2012Q4

REPORT INFORMATION
  Report Type: Spontaneous
  Country: US (occurrence: None)
  Receive Date: 20121018
  Receipt Date: 20121018
  Transmission Date: 20130627
  Serious: No
  Sender: FDA-Public Use
  Company Number: None

PATIENT
  Sex: Female
  Weight: 86.18 kg

DRUGS (2)
  1. TRIAMCINOLONE [Suspect]
     Indication: PAINFUL KNEE
     Dates: start: 20120911, end: 20120911
  2. TRIAMCINOLONE [Suspect]
     Indication: POST PROCEDURAL PAIN
     Dates: start: 20120911, end: 20120911

REACTIONS (5)
  - Breast infection [None]
  - Fungal infection [None]
  - Breast pain [None]
  - Product quality issue [None]
  - Product compounding quality issue [None]
